FAERS Safety Report 13749112 (Version 1)
Quarter: 2017Q3

REPORT INFORMATION
  Report Type: Spontaneous
  Country: SE (occurrence: SE)
  Receive Date: 20170713
  Receipt Date: 20170713
  Transmission Date: 20171127
  Serious: Yes (Life-Threatening)
  Sender: FDA-Public Use
  Company Number: SE-TEVA-784870ISR

PATIENT
  Age: 70 Year
  Sex: Male

DRUGS (2)
  1. FLUCONAZOLE. [Suspect]
     Active Substance: FLUCONAZOLE
     Route: 065
  2. ELIQUIS [Suspect]
     Active Substance: APIXABAN
     Route: 065

REACTIONS (1)
  - Wound haemorrhage [Recovered/Resolved]
